FAERS Safety Report 10222961 (Version 1)
Quarter: 2014Q2

REPORT INFORMATION
  Report Type: Spontaneous
  Country: JP (occurrence: JP)
  Receive Date: 20140607
  Receipt Date: 20140607
  Transmission Date: 20141212
  Serious: Yes (Other)
  Sender: FDA-Public Use
  Company Number: PHHY2014JP068099

PATIENT
  Age: 80 Year
  Sex: Male

DRUGS (1)
  1. CARBOPLATIN [Suspect]
     Indication: LUNG ADENOCARCINOMA

REACTIONS (2)
  - Decreased appetite [Unknown]
  - Performance status decreased [Unknown]
